FAERS Safety Report 6403290-9 (Version None)
Quarter: 2009Q4

REPORT INFORMATION
  Report Type: 
  Country: None (occurrence: None)
  Receive Date: 20091014
  Receipt Date: 20091014
  Transmission Date: 20100525
  Serious: Yes (Disabling)
  Sender: FDA-Public Use
  Company Number: None

PATIENT
  Age: 64 Year
  Sex: Female
  Weight: 81.6475 kg

DRUGS (1)
  1. ZICAM GEL SWABS FOR COLDS [Suspect]
     Dosage: NASAL/SEPTUM
     Route: 045
     Dates: end: 20081201

REACTIONS (2)
  - ANOSMIA [None]
  - HYPOGEUSIA [None]
